FAERS Safety Report 19215789 (Version 1)
Quarter: 2021Q2

REPORT INFORMATION
  Report Type: Report from Study
  Country: None (occurrence: US)
  Receive Date: 20210505
  Receipt Date: 20210505
  Transmission Date: 20210717
  Serious: Yes (Hospitalization, Other)
  Sender: FDA-Public Use
  Company Number: US-ABBVIE-21K-163-3886515-00

PATIENT
  Sex: Female

DRUGS (4)
  1. VENCLEXTA [Suspect]
     Active Substance: VENETOCLAX
     Dosage: ONE 100 MG TABLETS BY MOUTH EVERY DAY ON WEEK THREE
     Route: 048
  2. VENCLEXTA [Suspect]
     Active Substance: VENETOCLAX
     Dosage: TWO 100 MG TABLETS BY MOUTH EVERY DAY ON WEEK FOUR
     Route: 048
  3. VENCLEXTA [Suspect]
     Active Substance: VENETOCLAX
     Indication: ACUTE MYELOID LEUKAEMIA
     Dosage: TWO 10 MG TABLETS BY MOUTH EVERY DAY ON WEEK ONE
     Route: 048
  4. VENCLEXTA [Suspect]
     Active Substance: VENETOCLAX
     Indication: NEOPLASM MALIGNANT
     Dosage: ONE 50 MG TABLETS BY MOUTH EVERY DAY ON WEEK TWO
     Route: 048

REACTIONS (3)
  - Off label use [Unknown]
  - Multi-organ disorder [Unknown]
  - Acute kidney injury [Unknown]
